FAERS Safety Report 8030728-6 (Version None)
Quarter: 2012Q1

REPORT INFORMATION
  Report Type: 
  Country: None (occurrence: None)
  Receive Date: 20120109
  Receipt Date: 20120105
  Transmission Date: 20120608
  Serious: Yes (Death, Other)
  Sender: FDA-Public Use
  Company Number: HU-ROCHE-1028044

PATIENT

DRUGS (4)
  1. TACROLIMUS [Suspect]
     Indication: GRAFT VERSUS HOST DISEASE
  2. MYCOPHENOLATE MOFETIL [Suspect]
     Indication: GRAFT VERSUS HOST DISEASE
  3. RITUXIMAB [Suspect]
     Indication: GRAFT VERSUS HOST DISEASE
  4. METHYLPREDNISOLONE [Suspect]
     Indication: GRAFT VERSUS HOST DISEASE

REACTIONS (3)
  - BACTERIAL SEPSIS [None]
  - CYTOMEGALOVIRUS INFECTION [None]
  - ASPERGILLOSIS [None]
